FAERS Safety Report 8766545 (Version 1)
Quarter: 2012Q4

REPORT INFORMATION
  Report Type: 
  Country: SE (occurrence: SE)
  Receive Date: 20120904
  Receipt Date: 20120904
  Transmission Date: 20130627
  Serious: Yes (Death, Life-Threatening, Other)
  Sender: FDA-Public Use
  Company Number: PHHY2012SE075874

PATIENT
  Sex: Female

DRUGS (3)
  1. CYCLOPHOSPHAMIDE [Suspect]
     Indication: CHRONIC LYMPHOCYTIC LEUKAEMIA RECURRENT
     Dates: start: 200708
  2. FLUDARABINE [Suspect]
     Indication: CHRONIC LYMPHOCYTIC LEUKAEMIA RECURRENT
     Dates: start: 200708
  3. ALEMTUZUMAB [Suspect]
     Dosage: 30 mg, UNK
     Route: 058
     Dates: start: 200902

REACTIONS (4)
  - Multi-organ failure [Fatal]
  - Respiratory failure [Fatal]
  - Neutropenia [Recovered/Resolved]
  - Respiratory moniliasis [Recovered/Resolved]
